FAERS Safety Report 11168362 (Version 1)
Quarter: 2015Q2

REPORT INFORMATION
  Report Type: Spontaneous
  Country: HU (occurrence: HU)
  Receive Date: 20150605
  Receipt Date: 20150605
  Transmission Date: 20150821
  Serious: Yes (Other)
  Sender: FDA-Public Use
  Company Number: HU-TEVA-565942ISR

PATIENT
  Sex: Female

DRUGS (10)
  1. VIDOTIN KOMB [Suspect]
     Active Substance: INDAPAMIDE\PERINDOPRIL ERBUMINE
     Indication: HYPERTENSION
  2. ASPIRIN. [Suspect]
     Active Substance: ASPIRIN
  3. KARBIS [Suspect]
     Active Substance: CANDESARTAN CILEXETIL
     Indication: HYPERTENSION
  4. METOPROLOL Z HEXAL [Suspect]
     Active Substance: METOPROLOL SUCCINATE
     Indication: HYPERTENSION
  5. PAZOLEXA [Suspect]
     Active Substance: PANTOPRAZOLE SODIUM
  6. ANALGESIN (NAPROXEN SODIUM) [Suspect]
     Active Substance: NAPROXEN SODIUM
     Indication: PAIN
  7. OPTALGIN [Suspect]
     Active Substance: METAMIZOLE
     Indication: PAIN
  8. SEDRON (ALENDRONATE SODIUM) [Suspect]
     Active Substance: ALENDRONATE SODIUM
  9. AMLODIPINE [Suspect]
     Active Substance: AMLODIPINE BESYLATE
     Indication: HYPERTENSION
  10. ASACTAL [Suspect]
     Active Substance: ASPIRIN

REACTIONS (40)
  - Abdominal pain [Unknown]
  - Blister [Unknown]
  - Dyspnoea [Unknown]
  - Pruritus [Unknown]
  - Arthralgia [Unknown]
  - Malaise [Unknown]
  - Skin lesion [Unknown]
  - Thrombocytopenia [Unknown]
  - Vasculitis [Unknown]
  - Red blood cell abnormality [Unknown]
  - Granulocyte count decreased [Unknown]
  - Macrocytosis [Unknown]
  - Myelodysplastic syndrome [Unknown]
  - White blood cell count decreased [Unknown]
  - Back pain [Unknown]
  - Pyrexia [Unknown]
  - Muscle spasms [Unknown]
  - Pancreatitis [Unknown]
  - Stevens-Johnson syndrome [Unknown]
  - Aphthous stomatitis [Unknown]
  - Dysgeusia [Unknown]
  - Platelet count decreased [Unknown]
  - Anaemia [Unknown]
  - Chills [Unknown]
  - Rhinorrhoea [Unknown]
  - Pharyngeal oedema [Unknown]
  - Tongue disorder [Unknown]
  - Mucosal inflammation [Unknown]
  - Myalgia [Unknown]
  - Swelling face [Unknown]
  - Polychromasia [Unknown]
  - Red blood cell count decreased [Unknown]
  - Sneezing [Unknown]
  - Lip swelling [Unknown]
  - Swollen tongue [Unknown]
  - Paraesthesia [Unknown]
  - Eyelid oedema [Unknown]
  - Hypoaesthesia [Unknown]
  - Asthenia [Unknown]
  - Contusion [Unknown]
